FAERS Safety Report 4377687-5 (Version None)
Quarter: 2004Q2

REPORT INFORMATION
  Report Type: 
  Country: None (occurrence: None)
  Receive Date: 20040615
  Receipt Date: 19840409
  Transmission Date: 20050107
  Serious: Yes (Hospitalization, Congenital Anomaly)
  Sender: FDA-Public Use
  Company Number: US-ROCHE-840200576001

PATIENT

DRUGS (2)
  1. ACCUTANE [Suspect]
     Dates: start: 19840109, end: 19840330
  2. ACCUTANE [Suspect]
     Dates: start: 19831118, end: 19840108

REACTIONS (76)
  - ABDOMINAL DISTENSION [None]
  - ANAL ATRESIA [None]
  - ANAL FISTULA [None]
  - ANOREXIA [None]
  - ARTHROPATHY [None]
  - ATROPHY [None]
  - BRACHIAL PLEXUS INJURY [None]
  - COMPLICATION OF PREGNANCY [None]
  - CONGENITAL ANOMALY [None]
  - CONGENITAL EYE DISORDER [None]
  - CONGENITAL MUSCULOSKELETAL ANOMALY [None]
  - DEFORMITY [None]
  - DERMATITIS [None]
  - DERMATITIS DIAPER [None]
  - DEVELOPMENTAL DELAY [None]
  - FATIGUE [None]
  - FISTULA [None]
  - FOOT DEFORMITY [None]
  - GASTROINTESTINAL DISORDER [None]
  - GENERAL NUTRITION DISORDER [None]
  - GROWTH RETARDATION [None]
  - HAEMORRHAGE [None]
  - HERNIA PAIN [None]
  - HORSESHOE KIDNEY [None]
  - HYPERREFLEXIA [None]
  - HYPOTONIA [None]
  - IATROGENIC INJURY [None]
  - ILL-DEFINED DISORDER [None]
  - INCONTINENCE [None]
  - INFECTION [None]
  - INGUINAL HERNIA [None]
  - INTESTINAL OBSTRUCTION [None]
  - LYMPHADENOPATHY [None]
  - MILK ALLERGY [None]
  - MOTOR DYSFUNCTION [None]
  - MUSCLE DISORDER [None]
  - MUSCLE SPASMS [None]
  - MUSCULAR WEAKNESS [None]
  - NEONATAL DISORDER [None]
  - NERVE INJURY [None]
  - NERVE ROOT COMPRESSION [None]
  - NERVE STIMULATION TEST [None]
  - NERVE STIMULATION TEST ABNORMAL [None]
  - NEUROLOGICAL EXAMINATION ABNORMAL [None]
  - OTITIS MEDIA [None]
  - PAIN IN EXTREMITY [None]
  - PHIMOSIS [None]
  - PNEUMONIA BACTERIAL [None]
  - PREGNANCY [None]
  - PTERYGIUM COLLI [None]
  - PYREXIA [None]
  - RENAL AGENESIS [None]
  - RENAL DISORDER [None]
  - RENAL HYPERTROPHY [None]
  - RESPIRATORY SYNCYTIAL VIRUS INFECTION [None]
  - RIB DEFORMITY [None]
  - SCIATICA [None]
  - SCOLIOSIS [None]
  - SKIN DEPIGMENTATION [None]
  - SMALL FOR DATES BABY [None]
  - SPINAL DISORDER [None]
  - SPINE MALFORMATION [None]
  - SPONDYLOLYSIS [None]
  - STOMA SITE REACTION [None]
  - STOOLS WATERY [None]
  - TALIPES [None]
  - TORTICOLLIS [None]
  - UNEVALUABLE EVENT [None]
  - UPPER RESPIRATORY TRACT INFECTION [None]
  - URETHRAL DISCHARGE [None]
  - URINARY INCONTINENCE [None]
  - URINE ANALYSIS ABNORMAL [None]
  - URINE FLOW DECREASED [None]
  - VOMITING [None]
  - WEIGHT GAIN POOR [None]
  - WHEEZING [None]
